FAERS Safety Report 16334737 (Version 1)
Quarter: 2019Q2

REPORT INFORMATION
  Report Type: Spontaneous
  Country: US (occurrence: US)
  Receive Date: 20190520
  Receipt Date: 20190520
  Transmission Date: 20190711
  Serious: No
  Sender: FDA-Public Use
  Company Number: US-009507513-1905USA002775

PATIENT
  Age: 87 Year
  Sex: Male
  Weight: 94 kg

DRUGS (16)
  1. OMEGA-3 MARINE TRIGLYCERIDES [Concomitant]
     Active Substance: FISH OIL
  2. AMIODARONE [Concomitant]
     Active Substance: AMIODARONE
  3. NUPLAZID [Suspect]
     Active Substance: PIMAVANSERIN TARTRATE
     Indication: HALLUCINATION
  4. NUPLAZID [Suspect]
     Active Substance: PIMAVANSERIN TARTRATE
     Indication: PSYCHOTIC DISORDER
  5. NAMENDA [Concomitant]
     Active Substance: MEMANTINE HYDROCHLORIDE
  6. SINEMET [Suspect]
     Active Substance: CARBIDOPA\LEVODOPA
     Dosage: 1/2 TABLET TWICE A DAY
     Route: 048
     Dates: start: 201904
  7. PRILOSEC [Concomitant]
     Active Substance: OMEPRAZOLE MAGNESIUM
  8. CARDURA [Concomitant]
     Active Substance: DOXAZOSIN MESYLATE
  9. PROSCAR [Concomitant]
     Active Substance: FINASTERIDE
  10. PRALUENT [Concomitant]
     Active Substance: ALIROCUMAB
  11. TOPROL XL [Concomitant]
     Active Substance: METOPROLOL SUCCINATE
  12. ELIQUIS [Concomitant]
     Active Substance: APIXABAN
  13. CYMBALTA [Concomitant]
     Active Substance: DULOXETINE HYDROCHLORIDE
  14. NUPLAZID [Suspect]
     Active Substance: PIMAVANSERIN TARTRATE
     Indication: PARKINSON^S DISEASE PSYCHOSIS
     Dosage: 34 MILLIGRAM, QD
     Route: 048
     Dates: start: 20190416
  15. NUPLAZID [Suspect]
     Active Substance: PIMAVANSERIN TARTRATE
     Indication: DELUSION
  16. NUPLAZID [Suspect]
     Active Substance: PIMAVANSERIN TARTRATE
     Indication: DELUSION

REACTIONS (5)
  - Crying [Not Recovered/Not Resolved]
  - Logorrhoea [Not Recovered/Not Resolved]
  - Delusion [Not Recovered/Not Resolved]
  - Inappropriate schedule of product administration [Unknown]
  - Energy increased [Not Recovered/Not Resolved]

NARRATIVE: CASE EVENT DATE: 201904
